FAERS Safety Report 5781819-1 (Version None)
Quarter: 2008Q2

REPORT INFORMATION
  Report Type: 
  Country: None (occurrence: None)
  Receive Date: 20080618
  Receipt Date: 20080611
  Transmission Date: 20081010
  Serious: Yes (Hospitalization, Other)
  Sender: FDA-Public Use
  Company Number: 2008SP010994

PATIENT
  Age: 68 Year
  Sex: Male

DRUGS (3)
  1. TEMODAL [Suspect]
     Indication: METASTATIC MALIGNANT MELANOMA
     Dosage: 300 MG; PO
     Route: 048
     Dates: start: 20080507, end: 20080527
  2. BEVACIZUMAB (BEVACIZUMAB) [Suspect]
     Indication: METASTATIC MALIGNANT MELANOMA
     Dosage: 750 MG; IV
     Route: 042
     Dates: start: 20080507, end: 20080521
  3. FORTECORTIN [Concomitant]

REACTIONS (4)
  - HAEMOPTYSIS [None]
  - PAIN [None]
  - PULMONARY EMBOLISM [None]
  - PULMONARY HAEMORRHAGE [None]
